FAERS Safety Report 6524047 (Version 9)
Quarter: 2015Q2

REPORT INFORMATION
  Report Type: Spontaneous
  Country: US (occurrence: US)
  Receive Date: 20080110
  Receipt Date: 20150514
  Transmission Date: 20150821
  Serious: Yes (Life-Threatening, Congenital Anomaly, Other)
  Sender: FDA-Public Use
  Company Number: US-ELI_LILLY_AND_COMPANY-US200801000469

PATIENT
  Age: 0 Day

DRUGS (6)
  1. REGLAN [Concomitant]
     Active Substance: METOCLOPRAMIDE HYDROCHLORIDE
     Indication: VOMITING
  2. PROZAC [Suspect]
     Active Substance: FLUOXETINE HYDROCHLORIDE
     Indication: DEPRESSION
     Dosage: 1 D/F, UNK
     Route: 064
  3. ZOFRAN                             /00955301/ [Concomitant]
     Active Substance: ONDANSETRON HYDROCHLORIDE
     Indication: NAUSEA
     Dosage: 8 MG, PRN
     Route: 048
  4. TYLENOL [Concomitant]
     Active Substance: ACETAMINOPHEN
     Dosage: UNK, PRN
     Route: 065
  5. REGLAN [Concomitant]
     Active Substance: METOCLOPRAMIDE HYDROCHLORIDE
     Indication: NAUSEA
     Dosage: UNK, UNKNOWN
     Route: 064
  6. AMPICILLIN [Concomitant]
     Active Substance: AMPICILLIN
     Dosage: UNK, UNKNOWN
     Route: 064

REACTIONS (11)
  - Atrial septal defect [Unknown]
  - Scimitar syndrome [Unknown]
  - Patent ductus arteriosus [Recovered/Resolved]
  - Wolff-Parkinson-White syndrome congenital [Unknown]
  - Ventricular septal defect [Recovered/Resolved]
  - Umbilical cord abnormality [Unknown]
  - Loss of proprioception [Unknown]
  - Foetal exposure during pregnancy [Recovered/Resolved]
  - Asthma [Unknown]
  - Language disorder [Unknown]
  - Persistent foetal circulation [Not Recovered/Not Resolved]

NARRATIVE: CASE EVENT DATE: 20061115
